FAERS Safety Report 21029064 (Version 3)
Quarter: 2022Q3

REPORT INFORMATION
  Report Type: Spontaneous
  Country: US (occurrence: None)
  Receive Date: 20220630
  Receipt Date: 20220902
  Transmission Date: 20221027
  Serious: Yes (Hospitalization)
  Sender: FDA-Public Use
  Company Number: US-FARMAPROD-202206-1158

PATIENT
  Sex: Female

DRUGS (1)
  1. OXERVATE [Suspect]
     Active Substance: CENEGERMIN-BKBJ
     Indication: Neurotrophic keratopathy
     Route: 047
     Dates: start: 20220513

REACTIONS (5)
  - Nephrolithiasis [Unknown]
  - Diarrhoea [Unknown]
  - Dysphagia [Unknown]
  - Blood pressure decreased [Unknown]
  - Foaming at mouth [Unknown]
